FAERS Safety Report 10541278 (Version 1)
Quarter: 2014Q4

REPORT INFORMATION
  Report Type: Spontaneous
  Country: PL (occurrence: PL)
  Receive Date: 20141024
  Receipt Date: 20141024
  Transmission Date: 20150529
  Serious: Yes (Other)
  Sender: FDA-Public Use
  Company Number: PL-ROXANE LABORATORIES, INC.-2014-BI-50461GD

PATIENT
  Sex: Male
  Weight: 2.8 kg

DRUGS (4)
  1. FORMOTEROL [Suspect]
     Active Substance: FORMOTEROL
     Indication: EXPOSURE DURING PREGNANCY
     Route: 064
  2. PREDNISONE. [Suspect]
     Active Substance: PREDNISONE
     Indication: EXPOSURE DURING PREGNANCY
     Route: 064
  3. SALBUTAMOL [Suspect]
     Active Substance: ALBUTEROL
     Indication: EXPOSURE DURING PREGNANCY
     Route: 064
  4. BUDESONIDE. [Suspect]
     Active Substance: BUDESONIDE
     Indication: EXPOSURE DURING PREGNANCY
     Route: 064

REACTIONS (1)
  - Foetal growth restriction [Unknown]
